FAERS Safety Report 7604237-X (Version None)
Quarter: 2011Q3

REPORT INFORMATION
  Report Type: 
  Country: None (occurrence: None)
  Receive Date: 20110712
  Receipt Date: 20110705
  Transmission Date: 20111222
  Serious: Yes (Other)
  Sender: FDA-Public Use
  Company Number: CH-GLAXOSMITHKLINE-B0732327A

PATIENT
  Age: 67 Year
  Sex: Male

DRUGS (3)
  1. EFFEXOR [Concomitant]
     Dosage: 300MG PER DAY
  2. LAMICTAL [Suspect]
     Indication: PRODUCT USED FOR UNKNOWN INDICATION
     Dosage: 200MG PER DAY
     Route: 048
  3. SURMONTIL [Concomitant]
     Dosage: 100MG PER DAY

REACTIONS (1)
  - ATROPHIC GLOSSITIS [None]
